FAERS Safety Report 14884513 (Version 1)
Quarter: 2018Q2

REPORT INFORMATION
  Report Type: Report from Study
  Country: US (occurrence: US)
  Receive Date: 20180511
  Receipt Date: 20180511
  Transmission Date: 20180711
  Serious: Yes (Hospitalization, Other)
  Sender: FDA-Public Use
  Company Number: US-MYLANLABS-2018M1030811

PATIENT
  Age: 27 Year
  Sex: Male
  Weight: 56 kg

DRUGS (4)
  1. TACROLIMUS. [Suspect]
     Active Substance: TACROLIMUS
     Indication: PROPHYLAXIS AGAINST TRANSPLANT REJECTION
     Dosage: 2 MG, BID
     Route: 048
     Dates: start: 20170725, end: 20170725
  2. ASPIRIN 81 [Suspect]
     Active Substance: ASPIRIN
     Indication: PROPHYLAXIS
     Dosage: 81 MG, QD
     Route: 048
     Dates: start: 20170725
  3. MYFORTIC [Concomitant]
     Active Substance: MYCOPHENOLATE SODIUM
     Indication: PRODUCT USED FOR UNKNOWN INDICATION
     Dosage: UNK
     Dates: start: 20170726
  4. PREDNISONE. [Suspect]
     Active Substance: PREDNISONE
     Indication: IMMUNOSUPPRESSION
     Dosage: 10 MG, QD
     Route: 048
     Dates: start: 20170909

REACTIONS (3)
  - Gastrointestinal haemorrhage [Recovered/Resolved]
  - Visual impairment [Unknown]
  - Melaena [Recovered/Resolved]

NARRATIVE: CASE EVENT DATE: 20171031
